FAERS Safety Report 17145302 (Version 1)
Quarter: 2019Q4

REPORT INFORMATION
  Report Type: Spontaneous
  Country: US (occurrence: US)
  Receive Date: 20191119
  Receipt Date: 20191119
  Transmission Date: 20200122
  Serious: Yes (Life-Threatening, Hospitalization)
  Sender: FDA-Public Use
  Company Number: None

PATIENT
  Age: 67 Year
  Sex: Male
  Weight: 88 kg

DRUGS (1)
  1. HYDROCHLOROTHIAZIDE. [Suspect]
     Active Substance: HYDROCHLOROTHIAZIDE
     Indication: HYPERTENSION
     Route: 048
     Dates: start: 20190820, end: 20191112

REACTIONS (6)
  - Tremor [None]
  - Fall [None]
  - Diarrhoea [None]
  - Asthenia [None]
  - Hypokalaemia [None]
  - Hyponatraemia [None]

NARRATIVE: CASE EVENT DATE: 20191112
